FAERS Safety Report 6013045-5 (Version None)
Quarter: 2008Q4

REPORT INFORMATION
  Report Type: 
  Country: None (occurrence: None)
  Receive Date: 20081219
  Receipt Date: 20081211
  Transmission Date: 20090506
  Serious: Yes (Hospitalization)
  Sender: FDA-Public Use
  Company Number: CA-AVENTIS-200714512EU

PATIENT
  Age: 69 Year
  Sex: Male
  Weight: 117 kg

DRUGS (8)
  1. LASIX [Suspect]
  2. BISOPROLOL FUMARATE [Concomitant]
  3. ALTACE [Concomitant]
  4. SPIRONOLACTONE [Concomitant]
  5. ASPIRIN [Concomitant]
     Indication: PROPHYLAXIS
     Route: 048
     Dates: start: 20040311
  6. COMBIVENT                          /01033501/ [Concomitant]
  7. FLOVENT [Concomitant]
  8. CODE UNBROKEN [Concomitant]
     Indication: BLOOD PRESSURE DECREASED
     Dosage: DOSE: 150 MG/DAY FOR 2 WEEKS FOLLOWING BY 300 MG/DAY
     Route: 048
     Dates: start: 20040311

REACTIONS (1)
  - HEPATIC ENCEPHALOPATHY [None]
